FAERS Safety Report 8501346-8 (Version None)
Quarter: 2012Q3

REPORT INFORMATION
  Report Type: 
  Country: None (occurrence: None)
  Receive Date: 20120710
  Receipt Date: 20120628
  Transmission Date: 20120928
  Serious: Yes (Death)
  Sender: FDA-Public Use
  Company Number: FR-CELGENEUS-056-21880-12063506

PATIENT
  Sex: Female
  Weight: 49 kg

DRUGS (9)
  1. CYTARABINE [Suspect]
     Dosage: 288 MILLIGRAM
     Route: 058
     Dates: start: 20120203, end: 20120209
  2. DOXORUBICIN HCL [Suspect]
     Dosage: 85 MILLIGRAM
     Route: 058
     Dates: start: 20120203, end: 20120205
  3. MEDIATOR [Concomitant]
     Route: 065
  4. DOXORUBICIN HCL [Suspect]
  5. NEUPOGEN [Concomitant]
     Route: 065
  6. REVLIMID [Suspect]
  7. CYTARABINE [Suspect]
  8. VITAMIN K TAB [Concomitant]
     Route: 065
  9. REVLIMID [Suspect]
     Dosage: 25 MILLIGRAM
     Route: 048
     Dates: start: 20120203, end: 20120209

REACTIONS (2)
  - INTESTINAL OBSTRUCTION [None]
  - SEPTIC SHOCK [None]
